FAERS Safety Report 7041036-4 (Version None)
Quarter: 2010Q4

REPORT INFORMATION
  Report Type: 
  Country: None (occurrence: None)
  Receive Date: 20101013
  Receipt Date: 20101001
  Transmission Date: 20110411
  Serious: Yes (Hospitalization)
  Sender: FDA-Public Use
  Company Number: CA-JNJFOC-20100904863

PATIENT
  Sex: Female
  Weight: 54.5 kg

DRUGS (10)
  1. REMICADE [Suspect]
     Indication: BEHCET'S SYNDROME
     Dosage: 5 TOTAL DOSES
     Route: 042
  2. REMICADE [Suspect]
     Route: 042
  3. REMICADE [Suspect]
     Indication: CROHN'S DISEASE
     Dosage: 5 TOTAL DOSES
     Route: 042
  4. REMICADE [Suspect]
     Route: 042
  5. STATEX [Concomitant]
  6. XANAX [Concomitant]
  7. ALPRAZOLAM [Concomitant]
  8. MORPHINE [Concomitant]
  9. IMOVANE [Concomitant]
  10. ATIVAN [Concomitant]

REACTIONS (9)
  - ASTHENIA [None]
  - BEHCET'S SYNDROME [None]
  - DENTAL OPERATION [None]
  - HAEMOGLOBIN DECREASED [None]
  - HEART RATE IRREGULAR [None]
  - MENINGITIS [None]
  - ORAL DISORDER [None]
  - VIRAL INFECTION [None]
  - VOMITING [None]
